FAERS Safety Report 4799898-7 (Version None)
Quarter: 2005Q4

REPORT INFORMATION
  Report Type: 
  Country: None (occurrence: None)
  Receive Date: 20051013
  Receipt Date: 20050930
  Transmission Date: 20060501
  Serious: Yes (Death)
  Sender: FDA-Public Use
  Company Number: HQWYE752030SEP05

PATIENT
  Age: 64 Year
  Sex: Female

DRUGS (17)
  1. GEMTUZUMAB OZOGAMICIN (GEMTUZUMAB OZOGAMICIN, INJECTION) [Suspect]
     Indication: ACUTE MYELOID LEUKAEMIA
     Dosage: 13.5 MG 1X PER 1 DAY INTRAVENOUS DRIP
     Route: 041
     Dates: start: 20050926, end: 20050926
  2. MEROPEN (MEROPENEM) [Concomitant]
  3. FUNGIZONE [Concomitant]
  4. VANCOMYCIN [Concomitant]
  5. MINOPHAGEN C (AMINOACETIC ACID/GLYCYRRHIZIC ACID) [Concomitant]
  6. SOLCOSERYL (BLOOD, CALF, DEPROT., LMW PORTION) [Concomitant]
  7. PRIMPERAN TAB [Concomitant]
  8. FAMOTIDINE [Concomitant]
  9. VISCORIN (ASCORBIC ACID) [Concomitant]
  10. FUNGIZONE [Concomitant]
  11. OZEX (TOSUFLOXACIN TOSILATE) [Concomitant]
  12. LENDORM [Concomitant]
  13. RABEPRAZOLE SODIUM [Concomitant]
  14. GASMOTIN (MOSAPRIDE CITRATE) [Concomitant]
  15. BIOFERMIN R (STREPTOCOCCUS FAECALIS) [Concomitant]
  16. PROMAC (POLAPREZINC) [Concomitant]
  17. DEPAS (ETIZOLAM) [Concomitant]

REACTIONS (14)
  - ALANINE AMINOTRANSFERASE INCREASED [None]
  - ASPARTATE AMINOTRANSFERASE INCREASED [None]
  - BLAST CELLS PRESENT [None]
  - BLOOD ALKALINE PHOSPHATASE INCREASED [None]
  - BLOOD LACTATE DEHYDROGENASE INCREASED [None]
  - CEREBRAL HAEMORRHAGE [None]
  - DISSEMINATED INTRAVASCULAR COAGULATION [None]
  - GAMMA-GLUTAMYLTRANSFERASE INCREASED [None]
  - HAEMATOCRIT DECREASED [None]
  - HEPATIC FUNCTION ABNORMAL [None]
  - INFUSION RELATED REACTION [None]
  - PYREXIA [None]
  - RED BLOOD CELL COUNT DECREASED [None]
  - WHITE BLOOD CELL COUNT DECREASED [None]
